FAERS Safety Report 5542600-1 (Version None)
Quarter: 2007Q4

REPORT INFORMATION
  Report Type: 
  Country: None (occurrence: None)
  Receive Date: 20071205
  Receipt Date: 20071205
  Transmission Date: 20080405
  Serious: Yes (Other)
  Sender: FDA-Public Use
  Company Number: None

PATIENT
  Age: 42 Year
  Sex: Female
  Weight: 112.4921 kg

DRUGS (5)
  1. RITUXAN 500MG GENENTECH, INC. [Suspect]
     Indication: WALDENSTROM'S MACROGLOBULINAEMIA
     Dosage: 780MG IN D5/0.45%NS EVERY 3 MONTHS IV
     Route: 042
     Dates: start: 20070731, end: 20071119
  2. RITUXAN 100MG GENENTECH, INC. [Suspect]
  3. ACETAMINOPHEN [Concomitant]
  4. METHYLPREDNISOLONE [Concomitant]
  5. DIPHENHYDRAMINE HCL [Concomitant]

REACTIONS (3)
  - ERYTHEMA [None]
  - HEART RATE INCREASED [None]
  - PRURITUS [None]
